FAERS Safety Report 25687162 (Version 2)
Quarter: 2025Q3

REPORT INFORMATION
  Report Type: Report from Study
  Country: US (occurrence: US)
  Receive Date: 20250816
  Receipt Date: 20250827
  Transmission Date: 20251020
  Serious: Yes (Life-Threatening, Hospitalization, Other)
  Sender: UNITED THERAPEUTICS
  Company Number: US-UNITED THERAPEUTICS-UNT-2025-027333

PATIENT
  Age: 3 Year
  Sex: Female

DRUGS (3)
  1. UNITUXIN [Suspect]
     Active Substance: DINUTUXIMAB
     Indication: Neuroblastoma
     Route: 041
  2. UNITUXIN [Suspect]
     Active Substance: DINUTUXIMAB
     Route: 041
  3. NITROUS OXIDE [Concomitant]
     Active Substance: NITROUS OXIDE
     Indication: Respiratory distress

REACTIONS (7)
  - Respiratory distress [Unknown]
  - Hypertension [Unknown]
  - Fluid imbalance [Unknown]
  - Blood pressure fluctuation [Unknown]
  - Capillary leak syndrome [Unknown]
  - Acute kidney injury [Unknown]
  - Proteinuria [Unknown]

NARRATIVE: CASE EVENT DATE: 20250101
